FAERS Safety Report 21977003 (Version 2)
Quarter: 2023Q1

REPORT INFORMATION
  Report Type: Report from Study
  Country: US (occurrence: US)
  Receive Date: 20230210
  Receipt Date: 20230224
  Transmission Date: 20230418
  Serious: No
  Sender: FDA-Public Use
  Company Number: US-002147023-NVSC2023US023972

PATIENT
  Age: 40 Year

DRUGS (1)
  1. KESIMPTA [Suspect]
     Active Substance: OFATUMUMAB
     Indication: Product used for unknown indication
     Dosage: 20 MG, QW
     Route: 058
     Dates: start: 20230128

REACTIONS (3)
  - Pharyngitis streptococcal [Recovering/Resolving]
  - Muscle spasms [Unknown]
  - Injection site bruising [Unknown]

NARRATIVE: CASE EVENT DATE: 20230128
